FAERS Safety Report 8221107 (Version 2)
Quarter: 2013Q1

REPORT INFORMATION
  Report Type: Spontaneous
  Country: US (occurrence: US)
  Receive Date: 20111102
  Receipt Date: 20130326
  Transmission Date: 20140127
  Serious: Yes (Life-Threatening, Hospitalization, Other)
  Sender: FDA-Public Use
  Company Number: US-PFIZER INC-2011265964

PATIENT
  Age: 52 Year
  Sex: Male

DRUGS (1)
  1. CHANTIX [Suspect]
     Indication: SMOKING CESSATION THERAPY
     Dosage: UNK

REACTIONS (31)
  - Craniocerebral injury [Unknown]
  - Multiple injuries [Unknown]
  - Skull fractured base [Unknown]
  - Tibia fracture [Unknown]
  - Ankle fracture [Recovering/Resolving]
  - Deep vein thrombosis [Unknown]
  - Loss of consciousness [Unknown]
  - Road traffic accident [Unknown]
  - Rib fracture [Unknown]
  - Foot fracture [Recovering/Resolving]
  - Atelectasis [Unknown]
  - Ligament sprain [Unknown]
  - Skull fractured base [Unknown]
  - Skull fracture [Unknown]
  - Excoriation [Unknown]
  - Cervical spinal stenosis [Unknown]
  - Deafness [Unknown]
  - Cognitive disorder [Unknown]
  - Vertigo [Unknown]
  - Ligament rupture [Unknown]
  - Rotator cuff syndrome [Unknown]
  - Spinal osteoarthritis [Unknown]
  - Memory impairment [Unknown]
  - Neuropathy peripheral [Unknown]
  - Rotator cuff syndrome [Unknown]
  - Sleep disorder [Unknown]
  - Dysphagia [Unknown]
  - Odynophagia [Unknown]
  - Sensation of foreign body [Unknown]
  - Dysphonia [Unknown]
  - Epistaxis [Unknown]
